FAERS Safety Report 5877258-5 (Version None)
Quarter: 2008Q3

REPORT INFORMATION
  Report Type: 
  Country: None (occurrence: None)
  Receive Date: 20080910
  Receipt Date: 20080829
  Transmission Date: 20090109
  Serious: Yes (Other)
  Sender: FDA-Public Use
  Company Number: GB-PFIZER INC-2008073613

PATIENT
  Age: 40 Year
  Sex: Female

DRUGS (1)
  1. SUTENT [Suspect]
     Indication: DRUG USE FOR UNKNOWN INDICATION
     Route: 048
     Dates: start: 20080815, end: 20080825

REACTIONS (4)
  - NEPHRITIC SYNDROME [None]
  - PERIORBITAL OEDEMA [None]
  - RENAL HAEMORRHAGE [None]
  - URINARY TRACT INFECTION [None]
